FAERS Safety Report 15270259 (Version 3)
Quarter: 2020Q4

REPORT INFORMATION
  Report Type: Spontaneous
  Country: US (occurrence: US)
  Receive Date: 20180813
  Receipt Date: 20201113
  Transmission Date: 20210113
  Serious: No
  Sender: FDA-Public Use
  Company Number: US-PFIZER INC-2018325559

PATIENT
  Age: 69 Year
  Sex: Female
  Weight: 77.1 kg

DRUGS (2)
  1. GABAPENTIN. [Suspect]
     Active Substance: GABAPENTIN
     Indication: FIBROMYALGIA
     Dosage: UNK
  2. GABAPENTIN. [Suspect]
     Active Substance: GABAPENTIN
     Dosage: 600 MG, TWICE A DAY (600 MG CAPSULE, BID, MAINTENANCE)

REACTIONS (2)
  - Off label use [Unknown]
  - Drug ineffective [Unknown]
